FAERS Safety Report 6161427-3 (Version None)
Quarter: 2009Q2

REPORT INFORMATION
  Report Type: 
  Country: None (occurrence: None)
  Receive Date: 20090421
  Receipt Date: 20090415
  Transmission Date: 20091009
  Serious: Yes (Other)
  Sender: FDA-Public Use
  Company Number: ES-BRISTOL-MYERS SQUIBB COMPANY-14591382

PATIENT
  Age: 40 Year
  Sex: Male

DRUGS (2)
  1. SPRYCEL [Suspect]
     Indication: CHRONIC MYELOID LEUKAEMIA
     Dosage: RESTARTED JAN08 AND INTERRUPTED AGAIN MAR08.REDUCED TO 50MG/12H
     Route: 048
     Dates: start: 20070212
  2. DEPOCYT [Suspect]
     Dosage: 50 MG/15 DAYS X 3
     Route: 037

REACTIONS (3)
  - BLINDNESS [None]
  - HEADACHE [None]
  - PLEURAL EFFUSION [None]
